FAERS Safety Report 20952485 (Version 1)
Quarter: 2022Q2

REPORT INFORMATION
  Report Type: Spontaneous
  Country: BR (occurrence: BR)
  Receive Date: 20220613
  Receipt Date: 20220613
  Transmission Date: 20220721
  Serious: Yes (Other)
  Sender: FDA-Public Use
  Company Number: BR-BAXTER-2022BAX012182

PATIENT
  Age: 47 Year
  Sex: Female
  Weight: 65 kg

DRUGS (2)
  1. IRON [Suspect]
     Active Substance: IRON
     Indication: Iron deficiency anaemia
     Dosage: 2 AMPOULES DILUTED IN 250 ML OF 0.9% SODIUM CHLORIDE
     Route: 042
     Dates: start: 20220531, end: 20220531
  2. SODIUM CHLORIDE [Suspect]
     Active Substance: SODIUM CHLORIDE
     Indication: Medication dilution
     Dosage: 250 ML, 2 AMPOULES OF SUCROFER DILUTED IN 250 ML OF 0.9% SODIUM CHLORIDE
     Route: 042
     Dates: start: 20220531, end: 20220531

REACTIONS (3)
  - Paraesthesia [Recovered/Resolved]
  - Oedema peripheral [Recovered/Resolved]
  - Off label use [Unknown]

NARRATIVE: CASE EVENT DATE: 20220531
